FAERS Safety Report 7762221-X (Version None)
Quarter: 2011Q3

REPORT INFORMATION
  Report Type: 
  Country: None (occurrence: None)
  Receive Date: 20110920
  Receipt Date: 20110915
  Transmission Date: 20111222
  Serious: No
  Sender: FDA-Public Use
  Company Number: US-PFIZER INC-2011005740

PATIENT
  Sex: Female
  Weight: 57.6 kg

DRUGS (6)
  1. SYNTHROID [Concomitant]
     Indication: HYPOTHYROIDISM
     Dosage: 100 UG, UNK
     Route: 048
  2. PREMARIN [Suspect]
     Dosage: 0.9 MG, 1X/DAY
     Route: 048
     Dates: start: 19830101
  3. PREMARIN [Suspect]
     Dosage: 0.9 MG, UNK
  4. SYNTHROID [Concomitant]
     Dosage: UNK
  5. PREMARIN [Suspect]
     Indication: HORMONE REPLACEMENT THERAPY
     Dosage: 1.25 MG, 1X/DAY
     Route: 048
     Dates: start: 19980101
  6. PREMARIN [Suspect]
     Indication: MENOPAUSE
     Dosage: 1.25 MG, 1X/DAY
     Route: 048
     Dates: start: 20101207, end: 20110601

REACTIONS (3)
  - HOT FLUSH [None]
  - RASH [None]
  - DRUG INEFFECTIVE [None]
